FAERS Safety Report 7109862-0 (Version None)
Quarter: 2010Q4

REPORT INFORMATION
  Report Type: 
  Country: None (occurrence: None)
  Receive Date: 20101118
  Receipt Date: 20101110
  Transmission Date: 20110411
  Serious: Yes (Other)
  Sender: FDA-Public Use
  Company Number: US-AMGEN-USASP2010004771

PATIENT

DRUGS (11)
  1. NPLATE [Suspect]
     Indication: IDIOPATHIC THROMBOCYTOPENIC PURPURA
     Dates: start: 20090710, end: 20090701
  2. IMMU-G [Concomitant]
     Dosage: UNK
     Dates: start: 20090704
  3. DECADRON [Concomitant]
  4. CARVEDILOL [Concomitant]
  5. SPIRIVA [Concomitant]
  6. SIMVASTATIN [Concomitant]
  7. TORSEMIDE [Concomitant]
  8. POTASSIUM CHLORIDE [Concomitant]
  9. AVANDIA [Concomitant]
  10. METFORMIN [Concomitant]
  11. SYNTHROID [Concomitant]

REACTIONS (3)
  - ANAEMIA [None]
  - ECCHYMOSIS [None]
  - PROCEDURAL PAIN [None]
